FAERS Safety Report 16096209 (Version 1)
Quarter: 2019Q1

REPORT INFORMATION
  Report Type: Spontaneous
  Country: US (occurrence: US)
  Receive Date: 20190320
  Receipt Date: 20190320
  Transmission Date: 20190418
  Serious: No
  Sender: FDA-Public Use
  Company Number: US-ALLERGAN-1907226US

PATIENT
  Age: 23 Year
  Sex: Female
  Weight: 70.3 kg

DRUGS (2)
  1. ADAPALENE. [Concomitant]
     Active Substance: ADAPALENE
     Dosage: UNK
  2. ACZONE [Suspect]
     Active Substance: DAPSONE
     Indication: ACNE
     Dosage: UNK, QD
     Route: 061

REACTIONS (2)
  - Expired product administered [Unknown]
  - Drug ineffective [Unknown]

NARRATIVE: CASE EVENT DATE: 201812
